FAERS Safety Report 19775368 (Version 1)
Quarter: 2021Q3

REPORT INFORMATION
  Report Type: Report from Study
  Country: CO (occurrence: CO)
  Receive Date: 20210901
  Receipt Date: 20210901
  Transmission Date: 20211014
  Serious: Yes (Hospitalization)
  Sender: FDA-Public Use
  Company Number: CO-ELI_LILLY_AND_COMPANY-CO202104005185

PATIENT
  Age: 83 Year
  Sex: Female

DRUGS (1)
  1. OLUMIANT [Suspect]
     Active Substance: BARICITINIB
     Indication: PRODUCT USED FOR UNKNOWN INDICATION
     Dosage: UNK UNK, UNKNOWN
     Route: 048
     Dates: start: 20210407

REACTIONS (10)
  - Vomiting [Unknown]
  - Dizziness [Unknown]
  - Dyspepsia [Unknown]
  - Abdominal pain [Unknown]
  - Decreased appetite [Unknown]
  - Nausea [Unknown]
  - Syncope [Unknown]
  - Abdominal pain upper [Unknown]
  - Haemoglobin decreased [Unknown]
  - Headache [Unknown]

NARRATIVE: CASE EVENT DATE: 202107
